FAERS Safety Report 12902594 (Version 4)
Quarter: 2016Q4

REPORT INFORMATION
  Report Type: Spontaneous
  Country: US (occurrence: US)
  Receive Date: 20161102
  Receipt Date: 20161213
  Transmission Date: 20170207
  Serious: Yes (Death, Other)
  Sender: FDA-Public Use
  Company Number: US-009507513-1610USA012811

PATIENT
  Sex: Female

DRUGS (1)
  1. INTRON A [Suspect]
     Active Substance: INTERFERON ALFA-2B
     Indication: SOFT TISSUE SARCOMA
     Dosage: 5 UNITS, TIW
     Route: 023
     Dates: start: 20151204

REACTIONS (1)
  - Neoplasm malignant [Fatal]
